FAERS Safety Report 11206082 (Version 1)
Quarter: 2015Q2

REPORT INFORMATION
  Report Type: Spontaneous
  Country: US (occurrence: None)
  Receive Date: 20150618
  Receipt Date: 20150618
  Transmission Date: 20150821
  Serious: No
  Sender: FDA-Public Use
  Company Number: None

PATIENT
  Age: 66 Year
  Sex: Male
  Weight: 90.72 kg

DRUGS (1)
  1. METFORORMIN 500MG AVKARE [Suspect]
     Active Substance: METFORMIN HYDROCHLORIDE
     Indication: DIABETES MELLITUS
     Dosage: 2 PILLS
     Route: 048
     Dates: start: 20150401, end: 20150617

REACTIONS (1)
  - Medication residue present [None]

NARRATIVE: CASE EVENT DATE: 20020619
